FAERS Safety Report 16768550 (Version 4)
Quarter: 2019Q4

REPORT INFORMATION
  Report Type: Spontaneous
  Country: US (occurrence: US)
  Receive Date: 20190903
  Receipt Date: 20191204
  Transmission Date: 20200122
  Serious: Yes (Other)
  Sender: FDA-Public Use
  Company Number: US-TEVA-2019-US-1101519

PATIENT
  Age: 92 Year
  Sex: Female

DRUGS (61)
  1. SYNRIBO [Suspect]
     Active Substance: OMACETAXINE MEPESUCCINATE
     Indication: CHRONIC MYELOID LEUKAEMIA
     Dosage: 2.0 MG/0.57 ML TWICE A DAY FOR 14 DAYS
     Route: 065
     Dates: start: 20190802
  2. RESVERATROL [Concomitant]
     Active Substance: DIETARY SUPPLEMENT\RESVERATROL
  3. OMEGA 3 [Concomitant]
     Active Substance: OMEGA-3 FATTY ACIDS
     Route: 048
  4. SELENIUM [Concomitant]
     Active Substance: SELENIUM
     Route: 048
  5. MELATONIN [Concomitant]
     Active Substance: MELATONIN
     Dosage: 10 MILLIGRAM DAILY;
  6. LECITHIN [Concomitant]
     Active Substance: LECITHIN
     Dosage: AS DIRECTED
  7. SYNRIBO [Suspect]
     Active Substance: OMACETAXINE MEPESUCCINATE
     Dosage: 2.0 MG/0.57 ML 1 FOR 14 DAYS
     Route: 065
     Dates: start: 20191023
  8. SYNRIBO [Suspect]
     Active Substance: OMACETAXINE MEPESUCCINATE
     Route: 048
  9. SYNRIBO [Suspect]
     Active Substance: OMACETAXINE MEPESUCCINATE
     Route: 048
  10. XARELTO [Concomitant]
     Active Substance: RIVAROXABAN
     Dosage: 15 MILLIGRAM DAILY;
  11. COENZYME Q10 [Concomitant]
     Active Substance: UBIDECARENONE
  12. HEMETAB [Concomitant]
     Active Substance: CYANOCOBALAMIN\FOLIC ACID\HEME IRON POLYPEPTIDE\IRON SUCROSE
  13. FOLIC ACID-VIT B6-VIT B12 [Concomitant]
     Route: 048
  14. VITAMIN D3 [Concomitant]
     Active Substance: CHOLECALCIFEROL
  15. MILK THISTLE [Concomitant]
     Active Substance: DIETARY SUPPLEMENT\HERBALS\MILK THISTLE
  16. CHOLECALCIFEROL (VITAMIN D3) [Concomitant]
     Dosage: 1428.5714 IU (INTERNATIONAL UNIT) DAILY; 25,000 UNITS TWICE WEEKLY. ON TUESDAYS AND FRIDAYS
  17. MAGNESIUM OXIDE. [Concomitant]
     Active Substance: MAGNESIUM OXIDE
     Dosage: 800 MICROGRAM DAILY;
     Route: 048
  18. MILK THISTLE [Concomitant]
     Active Substance: DIETARY SUPPLEMENT\HERBALS\MILK THISTLE
     Route: 048
  19. VITAMIN B12 [Concomitant]
     Active Substance: CYANOCOBALAMIN
     Dosage: 500 MICROGRAM DAILY;
  20. DHEA [Concomitant]
     Active Substance: PRASTERONE
     Dosage: 25 MILLIGRAM DAILY;
  21. PROBIOTIC [Concomitant]
     Active Substance: PROBIOTICS NOS
  22. COLOSTRUM [Concomitant]
     Active Substance: DIETARY SUPPLEMENT
     Dosage: 1000 MILLIGRAM DAILY;
     Route: 048
  23. COLOSTRUM [Concomitant]
     Active Substance: DIETARY SUPPLEMENT
     Route: 048
  24. ARGININE OXOGLURATE [Concomitant]
     Dosage: EXTENDED RELEASE?INSTRUCTION FOR USE: TAKE 85 MG BY MOUTH.
     Route: 048
  25. THREONINE [Concomitant]
     Active Substance: THREONINE
  26. COENZYME Q10 [Concomitant]
     Active Substance: UBIDECARENONE
     Dosage: 200 MICROGRAM DAILY; TAKE 100 MG BY MOUTH 2 TIMES DAILY
     Route: 048
  27. MAGNESIUM [Concomitant]
     Active Substance: MAGNESIUM
     Dosage: 500 MILLIGRAM DAILY;
     Route: 048
  28. SYNRIBO [Suspect]
     Active Substance: OMACETAXINE MEPESUCCINATE
     Dosage: 3.1 MG/0.89 ML TWICE A DAY FOR 7 DAYS
     Route: 065
     Dates: start: 20191003
  29. SYNRIBO [Suspect]
     Active Substance: OMACETAXINE MEPESUCCINATE
     Route: 048
  30. METOPROLOL TARTRATE. [Concomitant]
     Active Substance: METOPROLOL TARTRATE
  31. ACETYLCYST [Concomitant]
  32. MELATONIN [Concomitant]
     Active Substance: MELATONIN
     Route: 048
  33. ACETYLGLUCOSAMINE [Concomitant]
     Dosage: AS DIRECTED
  34. FOLIC ACID-VIT B6-VIT B12 [Concomitant]
     Route: 048
  35. LOPRESSOR [Concomitant]
     Active Substance: METOPROLOL TARTRATE
     Dosage: 12.5 MILLIGRAM DAILY;
     Route: 048
  36. RIBOSE [Concomitant]
     Active Substance: DIETARY SUPPLEMENT
     Dosage: 5 GRAM DAILY; AS DIRECTED 5 G 2 TIMES DAILY
  37. COENZYME Q10-VITAMIN [Concomitant]
     Route: 048
  38. COENZYME Q10-VITAMIN [Concomitant]
     Route: 048
  39. VALERIAN ROOT [Concomitant]
     Active Substance: VALERIAN
     Route: 048
  40. VITAMIN C [Concomitant]
     Active Substance: ASCORBIC ACID
     Dosage: 1000 MILLIGRAM DAILY;
     Route: 048
  41. LATANOPROST. [Concomitant]
     Active Substance: LATANOPROST
     Dosage: PLACE 1 DROP INTO BOTH EYES AT BEDTIME
  42. OMEGA 3 [Concomitant]
     Active Substance: OMEGA-3 FATTY ACIDS
     Route: 048
  43. ARGININE OXOGLURATE [Concomitant]
     Route: 048
  44. LASIX [Concomitant]
     Active Substance: FUROSEMIDE
     Dosage: 10 MILLIGRAM DAILY; 1 TABLET BY MOUTH ONCE EVERY OTHER DAY
     Route: 048
  45. THREONINE [Concomitant]
     Active Substance: THREONINE
     Route: 048
  46. ARMOUR THYROID [Concomitant]
     Active Substance: THYROID, PORCINE
     Route: 048
  47. SYNRIBO [Suspect]
     Active Substance: OMACETAXINE MEPESUCCINATE
     Route: 048
  48. METHOCARBAM [Concomitant]
     Active Substance: METHOCARBAMOL
  49. VITAMIN C [Concomitant]
     Active Substance: ASCORBIC ACID
     Dosage: 3000 MILLIGRAM DAILY;
     Route: 048
  50. VITAMIN E [Concomitant]
     Active Substance: .ALPHA.-TOCOPHEROL
  51. OMEGA 3 [Concomitant]
     Active Substance: OMEGA-3 FATTY ACIDS
     Route: 048
  52. FOLIC ACID-VIT B6-VIT B12 [Concomitant]
     Route: 048
  53. LACTOBAC.RHAMNOSUS GG-INULIN [Concomitant]
     Dosage: 10 BILLION CELL -200 MG
     Route: 048
  54. ARMOUR THYROID [Concomitant]
     Active Substance: THYROID, PORCINE
     Dosage: 45 MILLIGRAM DAILY;
     Route: 048
  55. ZINC. [Concomitant]
     Active Substance: ZINC
     Dosage: 50 MILLIGRAM DAILY;
     Route: 048
  56. ARMOUR THYROID [Concomitant]
     Active Substance: THYROID, PORCINE
  57. RIBOFLAVIN [Concomitant]
     Active Substance: RIBOFLAVIN
  58. OMEGA 3 [Concomitant]
     Active Substance: OMEGA-3 FATTY ACIDS
     Route: 048
  59. HOMOCYSTEINE SUPPORT [Concomitant]
  60. PROXY UNCLASSIFIED MED [Concomitant]
     Dosage: E2 0.8/E3 2.5/P 100/T 1/ GRAM CREAM. APPLY 2 PUMPS TO ALTERNATING LEGS QHS 25 DAYS/ MONTH
  61. SELENIUM [Concomitant]
     Active Substance: SELENIUM
     Route: 048

REACTIONS (2)
  - Transfusion [Unknown]
  - Asthenia [Unknown]

NARRATIVE: CASE EVENT DATE: 20190822
